FAERS Safety Report 16962910 (Version 1)
Quarter: 2019Q4

REPORT INFORMATION
  Report Type: Spontaneous
  Country: US (occurrence: US)
  Receive Date: 20191025
  Receipt Date: 20191025
  Transmission Date: 20200122
  Serious: Yes (Hospitalization)
  Sender: FDA-Public Use
  Company Number: None

PATIENT
  Age: 68 Year
  Sex: Male

DRUGS (9)
  1. MIDODRINE [Concomitant]
     Active Substance: MIDODRINE
  2. TACROLIMUS. [Suspect]
     Active Substance: TACROLIMUS
     Indication: LUNG TRANSPLANT
     Route: 048
  3. TACROLIMUS. [Suspect]
     Active Substance: TACROLIMUS
     Route: 048
  4. MUCINEX [Concomitant]
     Active Substance: GUAIFENESIN
  5. PREDNISONE. [Concomitant]
     Active Substance: PREDNISONE
  6. ACYCLOVIR. [Concomitant]
     Active Substance: ACYCLOVIR
  7. CALCITRIOL. [Concomitant]
     Active Substance: CALCITRIOL
  8. CALCIUM [Concomitant]
     Active Substance: CALCIUM
  9. RANITIDINE. [Concomitant]
     Active Substance: RANITIDINE

REACTIONS (1)
  - Surgery [None]

NARRATIVE: CASE EVENT DATE: 20191008
